FAERS Safety Report 18749541 (Version 3)
Quarter: 2021Q2

REPORT INFORMATION
  Report Type: Report from Study
  Country: DE (occurrence: DE)
  Receive Date: 20210116
  Receipt Date: 20210504
  Transmission Date: 20210717
  Serious: Yes (Other)
  Sender: FDA-Public Use
  Company Number: NVSC2019DE057909

PATIENT
  Age: 77 Year
  Sex: Female
  Weight: 84 kg

DRUGS (5)
  1. LETROZOLE. [Suspect]
     Active Substance: LETROZOLE
     Indication: BREAST CANCER METASTATIC
     Dosage: 2.5 MG, QD
     Route: 048
     Dates: start: 20190212
  2. KISQALI [Suspect]
     Active Substance: RIBOCICLIB
     Indication: BREAST CANCER METASTATIC
     Dosage: 400 MG, QD (SCHEMA 21 DAYS INTAKE, 7 DAYS PAUSE)
     Route: 048
     Dates: start: 20190213, end: 20190219
  3. KISQALI [Suspect]
     Active Substance: RIBOCICLIB
     Dosage: 400 MG, QD (SCHEMA 21 DAYS INTAKE, 7 DAYS PAUSE)
     Route: 048
     Dates: start: 20210120
  4. TRIMIPRAMINE [Concomitant]
     Active Substance: TRIMIPRAMINE
     Indication: PRODUCT USED FOR UNKNOWN INDICATION
     Dosage: UNK
     Route: 065
  5. KISQALI [Suspect]
     Active Substance: RIBOCICLIB
     Dosage: 400 MG, QD (SCHEMA 21 DAYS INTAKE, 7 DAYS PAUSE)
     Route: 048
     Dates: start: 20190228, end: 20201130

REACTIONS (11)
  - Middle insomnia [Unknown]
  - Pruritus [Unknown]
  - Alopecia [Unknown]
  - Diarrhoea [Unknown]
  - Abdominal distension [Unknown]
  - Muscle spasms [Unknown]
  - Anaemia [Recovering/Resolving]
  - Arthralgia [Not Recovered/Not Resolved]
  - Electrocardiogram QT prolonged [Recovered/Resolved]
  - Nausea [Unknown]
  - Vertigo [Unknown]

NARRATIVE: CASE EVENT DATE: 201902
